FAERS Safety Report 20703059 (Version 1)
Quarter: 2022Q2

REPORT INFORMATION
  Report Type: Report from Study
  Country: RU (occurrence: RU)
  Receive Date: 20220413
  Receipt Date: 20220413
  Transmission Date: 20220721
  Serious: Yes (Hospitalization)
  Sender: FDA-Public Use
  Company Number: RU-ABBVIE-22K-251-4354984-00

PATIENT
  Age: 62 Year
  Sex: Female
  Weight: 74 kg

DRUGS (7)
  1. RINVOQ [Suspect]
     Active Substance: UPADACITINIB
     Indication: Rheumatoid arthritis
     Dosage: ONCE (AS REPORTED)
     Route: 048
     Dates: start: 20210903
  2. METHOTREXATE [Concomitant]
     Active Substance: METHOTREXATE
     Indication: Rheumatoid arthritis
     Dosage: WEEKLY
     Route: 058
     Dates: start: 20141110, end: 20211218
  3. METHOTREXATE [Concomitant]
     Active Substance: METHOTREXATE
     Dosage: WEEKLY
     Route: 058
     Dates: start: 20211224
  4. CALCEMIN ADVANCE [Concomitant]
     Active Substance: CALCIUM CARBONATE\MAGNESIUM OXIDE\PREVITAMIN D3\SODIUM BORATE\ZINC OXIDE
     Indication: Prophylaxis
     Dosage: DAILY
     Route: 048
     Dates: start: 20161123
  5. VITAMIN D [Concomitant]
     Active Substance: VITAMIN D NOS
     Indication: Prophylaxis
     Dosage: DAILY
     Route: 048
     Dates: start: 20161123
  6. ZOLEDRONIC ACID [Concomitant]
     Active Substance: ZOLEDRONIC ACID
     Indication: Osteoporosis
     Dosage: PER YEAR ( AS REPORTED)
     Route: 051
     Dates: start: 20161123
  7. DEXAMETHASONE [Concomitant]
     Active Substance: DEXAMETHASONE
     Indication: Product used for unknown indication
     Dosage: DAILY
     Route: 042
     Dates: start: 20211218, end: 20211222

REACTIONS (1)
  - COVID-19 [Recovered/Resolved]

NARRATIVE: CASE EVENT DATE: 20211218
